FAERS Safety Report 9471316 (Version 2)
Quarter: 2013Q3

REPORT INFORMATION
  Report Type: Spontaneous
  Country: US (occurrence: US)
  Receive Date: 20130822
  Receipt Date: 20130822
  Transmission Date: 20140515
  Serious: No
  Sender: FDA-Public Use
  Company Number: US-COVIDIEN/TYCO HEALTHCARE/MALLINCKRODT-T201202909

PATIENT
  Age: 46 Year
  Sex: Male

DRUGS (15)
  1. CONRAY [Suspect]
     Indication: INTRATHECAL PUMP INSERTION
     Dosage: 0.5 - 1 ML, SINGLE
     Route: 037
     Dates: start: 20120724, end: 20120724
  2. CEFUROXIME [Concomitant]
     Indication: SURGERY
     Dosage: UNK
     Dates: start: 20120724
  3. MIDAZOLAM [Concomitant]
     Indication: SURGERY
     Dosage: UNK
     Dates: start: 20120724
  4. LIDOCAINE [Concomitant]
     Indication: SURGERY
     Dosage: UNK
     Dates: start: 20120724
  5. KETAMINE [Concomitant]
     Indication: SURGERY
     Dosage: UNK
     Dates: start: 20120724
  6. ONDANSETRON [Concomitant]
     Dosage: UNK
     Dates: start: 20120724
  7. LACTATED RINGER^S [Concomitant]
     Dosage: UNK
     Dates: start: 20120724
  8. VANCOMYCIN [Concomitant]
     Dosage: UNK
     Dates: start: 20120724
  9. FENTANYL [Concomitant]
     Dosage: UNK
     Dates: start: 20120724
  10. PROPOFOL [Concomitant]
     Dosage: UNK
     Dates: start: 20120724
  11. DEXAMETHASONE [Concomitant]
     Dosage: UNK
     Dates: start: 20120724
  12. ROCURONIUM [Concomitant]
     Dosage: UNK
     Dates: start: 20120724
  13. SUCCINYLCHOLINE [Concomitant]
     Dosage: UNK
     Dates: start: 20120724
  14. LORTAB                             /00607101/ [Concomitant]
     Dosage: 10 UNK, UNK
     Dates: start: 20120724
  15. METOPROLOL SUCCINATE [Concomitant]
     Dosage: UNK
     Dates: start: 20120724

REACTIONS (1)
  - Incorrect route of drug administration [Recovered/Resolved]
